FAERS Safety Report 4667366-9 (Version None)
Quarter: 2005Q2

REPORT INFORMATION
  Report Type: 
  Country: None (occurrence: None)
  Receive Date: 20050520
  Receipt Date: 20041015
  Transmission Date: 20051028
  Serious: Yes (Other)
  Sender: FDA-Public Use
  Company Number: PHEH2004US11277

PATIENT

DRUGS (1)
  1. ZOMETA [Suspect]

REACTIONS (2)
  - JAW DISORDER [None]
  - OSTEONECROSIS [None]
